FAERS Safety Report 9774373 (Version 2)
Quarter: 2014Q1

REPORT INFORMATION
  Report Type: Spontaneous
  Country: US (occurrence: US)
  Receive Date: 20131220
  Receipt Date: 20140124
  Transmission Date: 20141002
  Serious: Yes (Hospitalization)
  Sender: FDA-Public Use
  Company Number: US-JNJFOC-20131208421

PATIENT
  Age: 72 Year
  Sex: Male
  Weight: 81.65 kg

DRUGS (3)
  1. XARELTO [Suspect]
     Indication: CEREBROVASCULAR ACCIDENT
     Route: 048
     Dates: start: 20131003
  2. NORVASC [Concomitant]
     Indication: HYPERTENSION
     Route: 065
  3. BYSTOLIC [Concomitant]
     Indication: HYPERTENSION
     Route: 065

REACTIONS (1)
  - Cerebrovascular accident [Unknown]
